FAERS Safety Report 5143296-3 (Version None)
Quarter: 2006Q4

REPORT INFORMATION
  Report Type: 
  Country: None (occurrence: None)
  Receive Date: 20061103
  Receipt Date: 20061026
  Transmission Date: 20070319
  Serious: Yes (Hospitalization)
  Sender: FDA-Public Use
  Company Number: 2006CG01745

PATIENT
  Age: 70 Year
  Sex: Male
  Weight: 80 kg

DRUGS (2)
  1. XYLOCAINE [Suspect]
     Indication: ANAESTHESIA
     Dates: start: 20060829, end: 20060829
  2. HEXABRIX [Suspect]
     Indication: SCAN WITH CONTRAST
     Route: 014
     Dates: start: 20060829, end: 20060829

REACTIONS (3)
  - ARTHRALGIA [None]
  - ARTHRITIS [None]
  - SYNOVITIS [None]
